FAERS Safety Report 7486228-5 (Version None)
Quarter: 2011Q2

REPORT INFORMATION
  Report Type: 
  Country: None (occurrence: None)
  Receive Date: 20110517
  Receipt Date: 20110209
  Transmission Date: 20111010
  Serious: No
  Sender: FDA-Public Use
  Company Number: A0912963A

PATIENT
  Sex: Male

DRUGS (1)
  1. VOTRIENT [Suspect]
     Dosage: 800MG PER DAY
     Route: 048
     Dates: start: 20110126

REACTIONS (5)
  - PAIN [None]
  - EATING DISORDER [None]
  - MIGRAINE [None]
  - FATIGUE [None]
  - NAUSEA [None]
